FAERS Safety Report 10136199 (Version 2)
Quarter: 2014Q2

REPORT INFORMATION
  Report Type: Spontaneous
  Country: CN (occurrence: CN)
  Receive Date: 20140429
  Receipt Date: 20140516
  Transmission Date: 20141212
  Serious: Yes (Hospitalization)
  Sender: FDA-Public Use
  Company Number: CN-JNJFOC-20140410202

PATIENT
  Age: 75 Year
  Sex: Female
  Weight: 50 kg

DRUGS (2)
  1. TYLENOL COLD [Suspect]
     Indication: UPPER RESPIRATORY TRACT INFECTION
     Route: 048
     Dates: start: 20130531, end: 20130602
  2. ANTITHROMBOTIC AGENTS [Concomitant]
     Indication: HYPERTENSION
     Route: 065
     Dates: start: 20130501, end: 20130603

REACTIONS (2)
  - Melaena [Recovering/Resolving]
  - Abdominal pain [Recovering/Resolving]
